FAERS Safety Report 7497053-3 (Version None)
Quarter: 2011Q2

REPORT INFORMATION
  Report Type: 
  Country: None (occurrence: None)
  Receive Date: 20110523
  Receipt Date: 20110513
  Transmission Date: 20111010
  Serious: Yes (Death)
  Sender: FDA-Public Use
  Company Number: JP-CELGENEUS-087-CCAZA-11050054

PATIENT
  Sex: Female

DRUGS (17)
  1. ADONA [Suspect]
     Route: 051
     Dates: start: 20110414, end: 20110422
  2. FAMOTIDINE [Suspect]
     Route: 051
     Dates: start: 20110414, end: 20110422
  3. HUMULIN R [Concomitant]
     Route: 051
     Dates: start: 20110417, end: 20110422
  4. AZACITIDINE [Suspect]
     Dosage: 38.5 MILLIGRAM
     Route: 041
     Dates: start: 20110420, end: 20110422
  5. FUNGUARD [Suspect]
     Route: 041
     Dates: start: 20110409, end: 20110416
  6. SOLU-MEDROL [Suspect]
     Route: 041
     Dates: start: 20110416, end: 20110421
  7. ITRACONAZOLE [Concomitant]
     Route: 041
     Dates: start: 20110417, end: 20110422
  8. NEOPARIN [Suspect]
     Route: 051
     Dates: start: 20110414, end: 20110421
  9. INTRALIPID 10% [Suspect]
     Route: 041
     Dates: start: 20110408, end: 20110418
  10. MEROPENEM [Suspect]
     Route: 041
     Dates: start: 20110409, end: 20110421
  11. VANCOMYCIN [Suspect]
     Route: 041
     Dates: start: 20110410, end: 20110416
  12. SOLDEM [Suspect]
     Route: 051
     Dates: start: 20110414, end: 20110421
  13. ELEJECT [Suspect]
     Route: 051
     Dates: start: 20110414, end: 20110422
  14. ATARAX [Suspect]
     Route: 041
     Dates: start: 20110414, end: 20110419
  15. AZACITIDINE [Suspect]
     Dosage: 38.5 MILLIGRAM
     Route: 041
     Dates: start: 20110415, end: 20110417
  16. NAUZELIN [Suspect]
     Route: 048
     Dates: start: 20110405, end: 20110414
  17. SOLU-CORTEF [Suspect]
     Route: 041
     Dates: start: 20110416, end: 20110421

REACTIONS (1)
  - DEATH [None]
